FAERS Safety Report 12171951 (Version 1)
Quarter: 2016Q1

REPORT INFORMATION
  Report Type: Spontaneous
  Country: US (occurrence: None)
  Receive Date: 20160310
  Receipt Date: 20160310
  Transmission Date: 20160526
  Serious: No
  Sender: FDA-Public Use
  Company Number: None

PATIENT
  Age: 56 Year
  Sex: Female

DRUGS (4)
  1. LETROZOLE. [Concomitant]
     Active Substance: LETROZOLE
  2. OXYBUTYNIN [Concomitant]
     Active Substance: OXYBUTYNIN
  3. EFFEXOR [Concomitant]
     Active Substance: VENLAFAXINE HYDROCHLORIDE
  4. IBRANCE [Suspect]
     Active Substance: PALBOCICLIB
     Indication: BREAST CANCER
     Dosage: 75MG DAILY FOR 14 DAYS PO
     Route: 048

REACTIONS (3)
  - Upper respiratory tract infection [None]
  - Therapy cessation [None]
  - Fatigue [None]

NARRATIVE: CASE EVENT DATE: 201602
